FAERS Safety Report 7988692-1 (Version None)
Quarter: 2011Q4

REPORT INFORMATION
  Report Type: 
  Country: None (occurrence: None)
  Receive Date: 20111218
  Receipt Date: 20111206
  Transmission Date: 20120403
  Serious: Yes (Life-Threatening, Disabling)
  Sender: FDA-Public Use
  Company Number: CA-ELI_LILLY_AND_COMPANY-CA201110007877

PATIENT
  Sex: Male
  Weight: 73.469 kg

DRUGS (6)
  1. METOPROLOL TARTRATE [Concomitant]
  2. AMITRIPTYLINE HCL [Concomitant]
     Dosage: 25 MG, BID
  3. FENTANYL [Concomitant]
  4. INSULIN NPH                        /01223208/ [Concomitant]
  5. INSULIN RAPID [Concomitant]
  6. CYMBALTA [Suspect]
     Indication: DIABETIC NEUROPATHY
     Dosage: 60 MG, QD
     Route: 048
     Dates: start: 20100201

REACTIONS (5)
  - BLOOD GLUCOSE DECREASED [None]
  - BLOOD GLUCOSE INCREASED [None]
  - NAUSEA [None]
  - MOOD ALTERED [None]
  - VOMITING [None]
